FAERS Safety Report 6584837-9 (Version None)
Quarter: 2010Q1

REPORT INFORMATION
  Report Type: 
  Country: None (occurrence: None)
  Receive Date: 20100217
  Receipt Date: 20100204
  Transmission Date: 20100710
  Serious: Yes (Hospitalization, Other)
  Sender: FDA-Public Use
  Company Number: PHHY2009JP36293

PATIENT
  Sex: Male

DRUGS (8)
  1. AMN107 AMN+CAP [Suspect]
     Indication: CHRONIC MYELOID LEUKAEMIA
     Dosage: 400 MG/DAY
     Route: 048
     Dates: start: 20090610, end: 20090614
  2. AMN107 AMN+CAP [Suspect]
     Dosage: 200 MG/DAY
     Route: 048
     Dates: start: 20090624, end: 20090721
  3. AMN107 AMN+CAP [Suspect]
     Dosage: 400 MG/DAY
     Route: 048
     Dates: start: 20090722, end: 20090818
  4. AMN107 AMN+CAP [Suspect]
     Dosage: 200 MG/DAY
     Route: 048
     Dates: start: 20090819, end: 20090829
  5. GLEEVEC [Concomitant]
     Dosage: UNK
     Dates: start: 20060517, end: 20061024
  6. PREDONINE [Concomitant]
     Indication: PROPHYLAXIS
     Dosage: 20 MG DAILY
     Dates: start: 20090624
  7. PREDONINE [Concomitant]
     Dosage: 30 MG, UNK
     Route: 048
  8. PREDONINE [Concomitant]
     Dosage: 25 MG, UNK
     Route: 048

REACTIONS (8)
  - HYPERBILIRUBINAEMIA [None]
  - INFECTION [None]
  - INTERSTITIAL LUNG DISEASE [None]
  - LIPASE INCREASED [None]
  - PLATELET COUNT DECREASED [None]
  - PNEUMOCYSTIS JIROVECI PNEUMONIA [None]
  - PYREXIA [None]
  - RASH [None]
